FAERS Safety Report 4430600-4 (Version None)
Quarter: 2004Q3

REPORT INFORMATION
  Report Type: 
  Country: None (occurrence: None)
  Receive Date: 20040818
  Receipt Date: 20040730
  Transmission Date: 20050211
  Serious: Yes (Other)
  Sender: FDA-Public Use
  Company Number: JP_040804018

PATIENT
  Age: 65 Year
  Sex: Male
  Weight: 66 kg

DRUGS (3)
  1. HUMALOG [Suspect]
     Indication: DIABETES MELLITUS NON-INSULIN-DEPENDENT
     Dosage: 24 U DAY
     Dates: start: 20020726
  2. PENFILL 50R (INSULIN) [Concomitant]
  3. TRANDOLAPRIL [Concomitant]

REACTIONS (5)
  - CONDITION AGGRAVATED [None]
  - DIABETIC NEPHROPATHY [None]
  - MICROANGIOPATHY [None]
  - OEDEMA PERIPHERAL [None]
  - PROTEINURIA [None]
